FAERS Safety Report 18531005 (Version 1)
Quarter: 2020Q4

REPORT INFORMATION
  Report Type: Spontaneous
  Country: US (occurrence: US)
  Receive Date: 20201122
  Receipt Date: 20201122
  Transmission Date: 20210114
  Serious: No
  Sender: FDA-Public Use
  Company Number: US-LUPIN PHARMACEUTICALS INC.-2020-05320

PATIENT
  Sex: Female

DRUGS (1)
  1. CLOBETASOL PROPIONATE OINTMENT USP, 0.05% [Suspect]
     Active Substance: CLOBETASOL PROPIONATE
     Indication: LICHEN SCLEROSUS
     Dosage: UNK UNK, BID
     Route: 065

REACTIONS (2)
  - Off label use [Unknown]
  - No adverse event [Unknown]
